FAERS Safety Report 10933418 (Version 3)
Quarter: 2015Q2

REPORT INFORMATION
  Report Type: Spontaneous
  Country: US (occurrence: US)
  Receive Date: 20150320
  Receipt Date: 20150612
  Transmission Date: 20150821
  Serious: Yes (Other)
  Sender: FDA-Public Use
  Company Number: US-AMGEN-USASP2015025916

PATIENT
  Sex: Female

DRUGS (1)
  1. ENBREL [Suspect]
     Active Substance: ETANERCEPT
     Indication: PRODUCT USED FOR UNKNOWN INDICATION
     Dosage: UNK
     Route: 065

REACTIONS (12)
  - Ovarian hyperstimulation syndrome [Unknown]
  - Premature delivery [Recovered/Resolved]
  - Ankylosing spondylitis [Unknown]
  - Subchorionic haemorrhage [Unknown]
  - Pregnancy [Recovered/Resolved]
  - Arthralgia [Unknown]
  - Appetite disorder [Unknown]
  - Blighted ovum [Unknown]
  - Type 1 diabetes mellitus [Unknown]
  - Hypothyroidism [Unknown]
  - Infertility female [Unknown]
  - Polycystic ovaries [Unknown]
